FAERS Safety Report 4431038-6 (Version None)
Quarter: 2004Q3

REPORT INFORMATION
  Report Type: 
  Country: None (occurrence: None)
  Receive Date: 20040824
  Receipt Date: 20040629
  Transmission Date: 20050211
  Serious: Yes (Other)
  Sender: FDA-Public Use
  Company Number: US-BRISTOL-MYERS SQUIBB COMPANY-12627865

PATIENT
  Age: 63 Year
  Sex: Female

DRUGS (10)
  1. TAMOXIFEN CITRATE [Suspect]
     Indication: BREAST CANCER
     Route: 048
     Dates: end: 20040301
  2. MEGACE [Suspect]
     Indication: BREAST CANCER
     Dates: end: 20040301
  3. CARDIZEM [Concomitant]
  4. POTASSIUM [Concomitant]
  5. MACROBID [Concomitant]
  6. MULTI-VITAMINS [Concomitant]
  7. MODURETIC 5-50 [Concomitant]
  8. COUMADIN [Concomitant]
  9. AMBIEN [Concomitant]
  10. PROTONIX [Concomitant]
     Indication: GASTROINTESTINAL DISORDER

REACTIONS (1)
  - DYSPNOEA EXACERBATED [None]
